FAERS Safety Report 19757262 (Version 2)
Quarter: 2021Q4

REPORT INFORMATION
  Report Type: Spontaneous
  Country: GB (occurrence: GB)
  Receive Date: 20210828
  Receipt Date: 20211009
  Transmission Date: 20220303
  Serious: Yes (Disabling)
  Sender: FDA-Public Use
  Company Number: None

PATIENT
  Age: 63 Year
  Sex: Male
  Weight: 77.56 kg

DRUGS (2)
  1. AMLODIPINE BESYLATE [Suspect]
     Active Substance: AMLODIPINE BESYLATE
     Indication: Ill-defined disorder
     Dosage: 10 MG
     Route: 048
     Dates: start: 20210705, end: 20210814
  2. ATORVASTATIN CALCIUM [Suspect]
     Active Substance: ATORVASTATIN CALCIUM
     Indication: Blood cholesterol increased
     Dosage: 20 MG
     Route: 048
     Dates: start: 20210707, end: 20210818

REACTIONS (4)
  - Myalgia [Unknown]
  - Chronic fatigue syndrome [Unknown]
  - Fatigue [Unknown]
  - Asthenia [Unknown]
